FAERS Safety Report 4729961-8 (Version None)
Quarter: 2005Q3

REPORT INFORMATION
  Report Type: 
  Country: None (occurrence: None)
  Receive Date: 20050801
  Receipt Date: 20050728
  Transmission Date: 20060218
  Serious: Yes (Life-Threatening)
  Sender: FDA-Public Use
  Company Number: 2005PK01384

PATIENT
  Age: 31194 Day
  Sex: Female
  Weight: 50 kg

DRUGS (8)
  1. NEXIUM [Suspect]
     Indication: REFLUX OESOPHAGITIS
     Route: 048
     Dates: start: 20050602, end: 20050605
  2. NEXIUM [Suspect]
     Indication: GASTRIC ULCER
     Route: 048
     Dates: start: 20050602, end: 20050605
  3. PANTOPRAZOLE SODIUM [Suspect]
     Indication: REFLUX OESOPHAGITIS
     Route: 042
     Dates: start: 20050519, end: 20050601
  4. PANTOPRAZOLE SODIUM [Suspect]
     Indication: GASTRIC ULCER
     Route: 042
     Dates: start: 20050519, end: 20050601
  5. MCP [Concomitant]
     Indication: IMPAIRED GASTRIC EMPTYING
     Route: 042
     Dates: start: 20050530, end: 20050603
  6. AMINOMIX INFUSION [Concomitant]
     Route: 042
  7. RINGER [Concomitant]
     Route: 042
  8. LIPOFUNDIN [Concomitant]
     Route: 042

REACTIONS (1)
  - PANCYTOPENIA [None]
